FAERS Safety Report 17349423 (Version 2)
Quarter: 2020Q1

REPORT INFORMATION
  Report Type: Spontaneous
  Country: CZ (occurrence: CZ)
  Receive Date: 20200130
  Receipt Date: 20200220
  Transmission Date: 20200409
  Serious: Yes (Other)
  Sender: FDA-Public Use
  Company Number: CZ-SA-2017SA011398

PATIENT
  Sex: Male

DRUGS (4)
  1. CABAZITAXEL [Suspect]
     Active Substance: CABAZITAXEL
     Indication: PROSTATE CANCER
     Dosage: UNK UNK,QCY
     Route: 042
     Dates: start: 201510, end: 201510
  2. CABAZITAXEL [Suspect]
     Active Substance: CABAZITAXEL
     Dosage: UNK UNK,QCY
     Route: 042
     Dates: start: 201604, end: 201604
  3. DOCETAXEL. [Suspect]
     Active Substance: DOCETAXEL
     Indication: PROSTATE CANCER
     Dosage: UNK UNK,QCY
     Route: 042
     Dates: start: 201403, end: 201410
  4. DOCETAXEL. [Suspect]
     Active Substance: DOCETAXEL
     Dosage: UNK UNK,QCY
     Route: 042
     Dates: start: 201502, end: 201507

REACTIONS (5)
  - Paraesthesia [Recovered/Resolved]
  - Prostatic specific antigen increased [Recovering/Resolving]
  - Asthenia [Recovered/Resolved]
  - Bone pain [Recovered/Resolved]
  - Metastasis [Unknown]

NARRATIVE: CASE EVENT DATE: 201403
